FAERS Safety Report 8871306 (Version 2)
Quarter: 2012Q4

REPORT INFORMATION
  Report Type: 
  Country: AU (occurrence: AU)
  Receive Date: 20121029
  Receipt Date: 20121120
  Transmission Date: 20130627
  Serious: Yes (Hospitalization, Other)
  Sender: FDA-Public Use
  Company Number: AU-ROCHE-1149480

PATIENT
  Sex: Male

DRUGS (4)
  1. AVASTIN [Suspect]
     Indication: GLIOBLASTOMA MULTIFORME
     Route: 042
     Dates: start: 20090904, end: 20120726
  2. AVASTIN [Suspect]
     Indication: OLIGODENDROGLIOMA
  3. TEMODAL [Concomitant]
     Route: 065
     Dates: start: 200905
  4. WARFARIN [Concomitant]

REACTIONS (4)
  - Fall [Unknown]
  - Hypotension [Recovered/Resolved]
  - Haemorrhage [Recovered/Resolved]
  - Arterial rupture [Unknown]
